FAERS Safety Report 5373096-0 (Version None)
Quarter: 2007Q2

REPORT INFORMATION
  Report Type: 
  Country: None (occurrence: None)
  Receive Date: 20070619
  Receipt Date: 20070423
  Transmission Date: 20071010
  Serious: No
  Sender: FDA-Public Use
  Company Number: 2007US001002

PATIENT
  Age: 50 Year
  Sex: Female

DRUGS (5)
  1. VESICARE [Suspect]
     Indication: HYPERTONIC BLADDER
     Dosage: 5  MG, UID/QD
     Dates: start: 20070401, end: 20070401
  2. ASPIRIN [Concomitant]
  3. TENORMIN [Concomitant]
  4. LIPITOR [Concomitant]
  5. CALCIUM(ASCORBIC ACID) [Concomitant]

REACTIONS (1)
  - CONFUSIONAL STATE [None]
